FAERS Safety Report 8584677-5 (Version None)
Quarter: 2012Q3

REPORT INFORMATION
  Report Type: 
  Country: None (occurrence: None)
  Receive Date: 20120810
  Receipt Date: 20100511
  Transmission Date: 20120928
  Serious: Yes (Other)
  Sender: FDA-Public Use
  Company Number: CO-PFIZER INC-2012193594

PATIENT
  Age: 62 Year
  Sex: Male

DRUGS (6)
  1. METOPROLOL [Concomitant]
     Dosage: 50 MG, 2X/DAY
  2. HYDROCHLOROTHIAZIDE [Concomitant]
     Dosage: 25 MG, 1X/DAY
  3. ISOSORBIDE DINITRATE [Concomitant]
     Dosage: 10 MG, 2X/DAY
  4. LIPITOR [Suspect]
     Dosage: 20 MG EVERY 24 HOURS
  5. ACETYLSALICYLIC ACID [Concomitant]
     Dosage: 100 MG, ONCE DAILY
  6. LOSARTAN [Concomitant]
     Dosage: 50 MG, EVERY 12 HOURS

REACTIONS (1)
  - DYSPNOEA EXERTIONAL [None]
